FAERS Safety Report 5894268-2 (Version None)
Quarter: 2008Q3

REPORT INFORMATION
  Report Type: 
  Country: None (occurrence: None)
  Receive Date: 20080923
  Receipt Date: 20080509
  Transmission Date: 20090109
  Serious: No
  Sender: FDA-Public Use
  Company Number: US-ASTRAZENECA-2008UW05963

PATIENT
  Age: 27 Year
  Sex: Female
  Weight: 59.1 kg

DRUGS (2)
  1. SEROQUEL [Suspect]
     Indication: AGITATION
     Route: 048
     Dates: start: 20080310
  2. METH [Concomitant]
     Indication: DRUG WITHDRAWAL SYNDROME

REACTIONS (2)
  - IRRITABILITY [None]
  - RESTLESSNESS [None]
